FAERS Safety Report 9731996 (Version 2)
Quarter: 2013Q4

REPORT INFORMATION
  Report Type: Report from Study
  Country: BE (occurrence: BE)
  Receive Date: 20131205
  Receipt Date: 20131213
  Transmission Date: 20140711
  Serious: Yes (Hospitalization)
  Sender: FDA-Public Use
  Company Number: BE-BAYER-2013-147130

PATIENT
  Sex: Male

DRUGS (4)
  1. ALPHARADIN [Suspect]
     Indication: HORMONE-REFRACTORY PROSTATE CANCER
     Dosage: 4328 KBQ IV BOLUS
     Route: 042
     Dates: start: 20131114, end: 20131114
  2. ALPHARADIN [Suspect]
     Indication: METASTASES TO BONE
  3. TASECTAN [Concomitant]
     Indication: DIARRHOEA
     Dosage: 1 SACHET
     Route: 048
  4. IMODIUM [Concomitant]
     Indication: DIARRHOEA
     Dosage: 2 MG, QD
     Route: 048
     Dates: start: 201311, end: 20131128

REACTIONS (1)
  - Small intestinal obstruction [Recovered/Resolved]
